FAERS Safety Report 16514172 (Version 4)
Quarter: 2019Q4

REPORT INFORMATION
  Report Type: Report from Study
  Country: None (occurrence: CA)
  Receive Date: 20190702
  Receipt Date: 20191202
  Transmission Date: 20200122
  Serious: Yes (Hospitalization, Other)
  Sender: FDA-Public Use
  Company Number: CA-ABBVIE-19K-028-2835367-00

PATIENT
  Age: 62 Year
  Sex: Female

DRUGS (2)
  1. HUMIRA [Suspect]
     Active Substance: ADALIMUMAB
     Route: 058
     Dates: start: 2019, end: 201908
  2. HUMIRA [Suspect]
     Active Substance: ADALIMUMAB
     Indication: RHEUMATOID ARTHRITIS
     Route: 058
     Dates: start: 20151127, end: 201904

REACTIONS (11)
  - Pain [Unknown]
  - Ear infection [Recovered/Resolved]
  - Cellulitis [Unknown]
  - Pneumonia [Recovered/Resolved]
  - Hypoacusis [Recovering/Resolving]
  - Malaise [Unknown]
  - Erysipelas [Unknown]
  - Pneumonia [Unknown]
  - Skin infection [Recovered/Resolved]
  - Pulmonary fibrosis [Not Recovered/Not Resolved]
  - Ear injury [Unknown]

NARRATIVE: CASE EVENT DATE: 2019
